FAERS Safety Report 13507217 (Version 7)
Quarter: 2018Q1

REPORT INFORMATION
  Report Type: Spontaneous
  Country: JP (occurrence: JP)
  Receive Date: 20170503
  Receipt Date: 20180116
  Transmission Date: 20180508
  Serious: Yes (Death, Other)
  Sender: FDA-Public Use
  Company Number: JP-009507513-1705JPN000041J

PATIENT
  Age: 75 Year
  Sex: Male
  Weight: 59 kg

DRUGS (3)
  1. SENNOSIDE [Suspect]
     Active Substance: SENNOSIDES
     Dosage: 24 MG, QD
     Route: 048
     Dates: end: 20170427
  2. KEYTRUDA [Suspect]
     Active Substance: PEMBROLIZUMAB
     Indication: LUNG ADENOCARCINOMA STAGE IV
     Dosage: 200 MG, Q3W
     Route: 041
     Dates: start: 20170411, end: 20170411
  3. ZOMETA [Suspect]
     Active Substance: ZOLEDRONIC ACID
     Indication: METASTASES TO BONE
     Dosage: 4 MG, QD
     Route: 041
     Dates: start: 20170411, end: 20170411

REACTIONS (1)
  - Death [Fatal]

NARRATIVE: CASE EVENT DATE: 20170428
